FAERS Safety Report 7608474 (Version 15)
Quarter: 2013Q4

REPORT INFORMATION
  Report Type: Report from Study
  Country: CA (occurrence: CA)
  Receive Date: 20100927
  Receipt Date: 20131224
  Transmission Date: 20140711
  Serious: Yes (Hospitalization, Other)
  Sender: FDA-Public Use
  Company Number: PHHY2010CA61979

PATIENT
  Sex: Female

DRUGS (16)
  1. SANDOSTATIN [Suspect]
     Indication: CROHN^S DISEASE
     Dosage: 100 UG, BID
     Route: 058
     Dates: start: 201001
  2. SANDOSTATIN [Suspect]
     Dosage: 100 UG, BID
     Route: 058
     Dates: start: 201002
  3. SANDOSTATIN LAR [Suspect]
     Indication: CROHN^S DISEASE
     Dosage: 30 MG, QMO
     Route: 030
     Dates: start: 20100729, end: 20100831
  4. SANDOSTATIN LAR [Suspect]
     Dosage: 40 MG, EVERY 4 WEEKS
     Route: 030
     Dates: start: 20101018
  5. SANDOSTATIN LAR [Suspect]
     Dosage: 30 MG, TIW
     Route: 030
  6. SANDOSTATIN LAR [Suspect]
     Dosage: 20 MG, TIW
     Route: 030
  7. SANDOSTATIN LAR [Suspect]
     Dosage: 30 MG, TIW
     Route: 030
  8. SANDOSTATIN LAR [Suspect]
     Dosage: 30 MG, EVERY 4 WEEKS
     Route: 030
  9. SANDOSTATIN LAR [Suspect]
     Dosage: 30 MG, EVERY 3 WEEKS
     Route: 030
  10. PANTOPRAZOLE [Concomitant]
     Dosage: UNK UKN, UNK
  11. L-THYROXINE [Concomitant]
     Dosage: UNK UKN, UNK
  12. LOMOTIL [Concomitant]
     Dosage: UNK UKN, UNK
  13. CALCIUM CARBONATE [Concomitant]
     Dosage: UNK UKN, UNK
  14. FORTEO [Concomitant]
     Dosage: UNK UKN, UNK
  15. IMODIUM [Concomitant]
     Dosage: UNK UKN, UNK
  16. VITAMIN D NOS [Concomitant]
     Dosage: UNK UKN, UNK

REACTIONS (19)
  - Urinary tract infection [Unknown]
  - Wound infection [Recovering/Resolving]
  - Dehydration [Unknown]
  - Intestinal obstruction [Unknown]
  - Umbilical hernia [Unknown]
  - Short-bowel syndrome [Recovered/Resolved]
  - Adhesion [Unknown]
  - Body temperature decreased [Unknown]
  - Hypotension [Unknown]
  - Foot fracture [Unknown]
  - Malabsorption [Recovered/Resolved]
  - Renal failure chronic [Recovered/Resolved]
  - Sinusitis [Unknown]
  - Nasal congestion [Unknown]
  - Cough [Unknown]
  - Nasopharyngitis [Unknown]
  - Blood iron decreased [Unknown]
  - Diarrhoea [Unknown]
  - Drug effect decreased [Unknown]
